FAERS Safety Report 4620202-9 (Version None)
Quarter: 2005Q1

REPORT INFORMATION
  Report Type: 
  Country: None (occurrence: None)
  Receive Date: 20050321
  Receipt Date: 20050321
  Transmission Date: 20050727
  Serious: Yes (Life-Threatening)
  Sender: FDA-Public Use
  Company Number: None

PATIENT
  Age: 47 Year
  Sex: Male
  Weight: 111.1313 kg

DRUGS (4)
  1. VIOXX [Suspect]
     Indication: TENDONITIS
     Dosage: 25 MG DAILY ORAL
     Route: 048
     Dates: start: 20000910, end: 20001013
  2. NORVASC [Concomitant]
  3. LITHIUM [Concomitant]
  4. NEURONTIN [Concomitant]

REACTIONS (2)
  - MYOCARDIAL INFARCTION [None]
  - VENTRICULAR TACHYCARDIA [None]
